FAERS Safety Report 23947589 (Version 1)
Quarter: 2024Q2

REPORT INFORMATION
  Report Type: Report from Study
  Country: FR (occurrence: FR)
  Receive Date: 20240606
  Receipt Date: 20240606
  Transmission Date: 20240716
  Serious: Yes (Hospitalization)
  Sender: FDA-Public Use
  Company Number: None

PATIENT
  Age: 80 Year
  Sex: Male
  Weight: 99 kg

DRUGS (16)
  1. KRAZATI [Suspect]
     Active Substance: ADAGRASIB
     Indication: Lung adenocarcinoma
     Dosage: 1200 MG, QD
     Dates: start: 20240504, end: 20240514
  2. KRAZATI [Suspect]
     Active Substance: ADAGRASIB
     Dosage: 800 MG, QD
     Dates: start: 20240521
  3. DULOXETINE [Concomitant]
     Active Substance: DULOXETINE
     Dosage: 30 MG, QD
  4. ALBUTEROL SULFATE [Concomitant]
     Active Substance: ALBUTEROL SULFATE
     Dosage: 1 DOSAGE FORM, PRN
  5. XARELTO [Concomitant]
     Active Substance: RIVAROXABAN
     Dosage: 20 MG
  6. RIVAROXABAN [Concomitant]
     Active Substance: RIVAROXABAN
     Dosage: 20 MG, QD
  7. SMECTA [Concomitant]
     Active Substance: MONTMORILLONITE
  8. MONTMORILLONITE [Concomitant]
     Active Substance: MONTMORILLONITE
     Dosage: 1 DOSAGE FORM, PRN
  9. UMECLIDINIUM BROMIDE\VILANTEROL TRIFENATATE [Concomitant]
     Active Substance: UMECLIDINIUM BROMIDE\VILANTEROL TRIFENATATE
  10. UMECLIDINIUM [Concomitant]
     Active Substance: UMECLIDINIUM
     Dosage: 1 DOSAGE FORM, QD
  11. RACECADOTRIL [Concomitant]
     Active Substance: RACECADOTRIL
     Dosage: 100 MG
  12. Racecadotril Arrow [Concomitant]
     Dosage: 1 DOSAGE FORM, PRN
  13. LEVOTHYROXINE [Concomitant]
     Active Substance: LEVOTHYROXINE\LEVOTHYROXINE SODIUM
     Dosage: UNK, QD
  14. Macrogol 4000 arrow [Concomitant]
     Dosage: 1 DOSAGE FORM, PRN
  15. SILODOSIN [Concomitant]
     Active Substance: SILODOSIN
     Dosage: 8 MG, QD
  16. ALPRAZOLAM [Concomitant]
     Active Substance: ALPRAZOLAM
     Dosage: 0.25 MG, PRN

REACTIONS (2)
  - Malaise [Recovered/Resolved]
  - Asthenia [Recovered/Resolved]

NARRATIVE: CASE EVENT DATE: 20240501
